FAERS Safety Report 11203787 (Version 2)
Quarter: 2015Q3

REPORT INFORMATION
  Report Type: Spontaneous
  Country: JP (occurrence: JP)
  Receive Date: 20150619
  Receipt Date: 20150818
  Transmission Date: 20151125
  Serious: Yes (Hospitalization)
  Sender: FDA-Public Use
  Company Number: JP-ABBVIE-15P-087-1412451-00

PATIENT
  Sex: Female

DRUGS (1)
  1. LEUPLIN [Suspect]
     Active Substance: LEUPROLIDE ACETATE
     Indication: UTERINE LEIOMYOMA
     Dosage: 1.88 MG, Q4WEEKS
     Route: 058
     Dates: start: 201501

REACTIONS (2)
  - Arthralgia [Unknown]
  - Injection site induration [Unknown]

NARRATIVE: CASE EVENT DATE: 201506
